FAERS Safety Report 17366694 (Version 1)
Quarter: 2020Q1

REPORT INFORMATION
  Report Type: Spontaneous
  Country: US (occurrence: US)
  Receive Date: 20200204
  Receipt Date: 20200204
  Transmission Date: 20200409
  Serious: Yes (Hospitalization)
  Sender: FDA-Public Use
  Company Number: US-ASTRAZENECA-2020SE16817

PATIENT
  Age: 66 Day
  Sex: Male

DRUGS (5)
  1. SYNAGIS [Suspect]
     Active Substance: PALIVIZUMAB
     Indication: HETEROTAXIA
     Route: 030
     Dates: start: 20200127
  2. SYNAGIS [Suspect]
     Active Substance: PALIVIZUMAB
     Indication: ASPLENIA
     Route: 030
     Dates: start: 20200127
  3. SYNAGIS [Suspect]
     Active Substance: PALIVIZUMAB
     Indication: ATRIAL SEPTAL DEFECT
     Route: 030
     Dates: start: 20200127
  4. SYNAGIS [Suspect]
     Active Substance: PALIVIZUMAB
     Indication: MALFORMATION VENOUS
     Route: 030
     Dates: start: 20200127
  5. SYNAGIS [Suspect]
     Active Substance: PALIVIZUMAB
     Indication: DEXTROCARDIA
     Route: 030
     Dates: start: 20200127

REACTIONS (1)
  - Diaphragmatic hernia [Unknown]

NARRATIVE: CASE EVENT DATE: 20200127
